FAERS Safety Report 13907398 (Version 1)
Quarter: 2017Q3

REPORT INFORMATION
  Report Type: Spontaneous
  Country: US (occurrence: US)
  Receive Date: 20170825
  Receipt Date: 20170825
  Transmission Date: 20171127
  Serious: No
  Sender: FDA-Public Use
  Company Number: US-ROCHE-1070422

PATIENT
  Age: 15 Year

DRUGS (2)
  1. HEDERA HELIX [Suspect]
     Active Substance: HEDERA HELIX FLOWERING TWIG
     Indication: PRODUCT USED FOR UNKNOWN INDICATION
  2. NUTROPIN [Suspect]
     Active Substance: SOMATROPIN
     Indication: PRODUCT USED FOR UNKNOWN INDICATION

REACTIONS (2)
  - Eye swelling [Unknown]
  - Rash [Unknown]

NARRATIVE: CASE EVENT DATE: 20120510
